FAERS Safety Report 18033267 (Version 2)
Quarter: 2020Q4

REPORT INFORMATION
  Report Type: Spontaneous
  Country: US (occurrence: US)
  Receive Date: 20200716
  Receipt Date: 20201022
  Transmission Date: 20210113
  Serious: Yes (Hospitalization)
  Sender: FDA-Public Use
  Company Number: US-ABBVIE-20K-163-3479732-00

PATIENT
  Age: 68 Year
  Sex: Female
  Weight: 68.1 kg

DRUGS (2)
  1. CREON [Suspect]
     Active Substance: PANCRELIPASE AMYLASE\PANCRELIPASE LIPASE\PANCRELIPASE PROTEASE
     Indication: PANCREATIC ENZYMES DECREASED
     Dosage: 2 WITH EACH MEAL AND 1 WITH A SNACK
     Route: 048
     Dates: start: 201801
  2. CREON [Suspect]
     Active Substance: PANCRELIPASE AMYLASE\PANCRELIPASE LIPASE\PANCRELIPASE PROTEASE
     Indication: PANCREATIC FAILURE
     Route: 048

REACTIONS (7)
  - Ankle fracture [Not Recovered/Not Resolved]
  - Mobility decreased [Not Recovered/Not Resolved]
  - Gait inability [Not Recovered/Not Resolved]
  - Impaired healing [Not Recovered/Not Resolved]
  - Constipation [Recovered/Resolved]
  - Joint dislocation [Not Recovered/Not Resolved]
  - Neuropathic arthropathy [Recovering/Resolving]

NARRATIVE: CASE EVENT DATE: 201910
